FAERS Safety Report 5886712-1 (Version None)
Quarter: 2008Q3

REPORT INFORMATION
  Report Type: 
  Country: None (occurrence: None)
  Receive Date: 20080917
  Receipt Date: 20080911
  Transmission Date: 20090109
  Serious: Yes (Hospitalization)
  Sender: FDA-Public Use
  Company Number: PHEH2008US08159

PATIENT
  Sex: Female

DRUGS (1)
  1. RECLAST [Suspect]
     Dosage: 5 MG, UNK

REACTIONS (2)
  - LOSS OF CONSCIOUSNESS [None]
  - RASH [None]
